FAERS Safety Report 4523460-4 (Version None)
Quarter: 2004Q4

REPORT INFORMATION
  Report Type: 
  Country: None (occurrence: None)
  Receive Date: 20041208
  Receipt Date: 20041130
  Transmission Date: 20050328
  Serious: Yes (Other)
  Sender: FDA-Public Use
  Company Number: 7467

PATIENT
  Age: 48 Year
  Sex: Female

DRUGS (2)
  1. CARBOCAINE 3% (MEPIVACAINE HCL 3%) [Suspect]
     Indication: LOCAL ANAESTHESIA
     Dosage: 1 CARPULE
     Dates: start: 20040202
  2. SEPTOCAINE (ARTICAINE HCL 4% WITH EPRINEPHRINE 1:100,000) [Suspect]
     Indication: LOCAL ANAESTHESIA
     Dosage: 1 CARPULE
     Dates: start: 20040202

REACTIONS (4)
  - BONE DISORDER [None]
  - BURNING SENSATION [None]
  - HYPOAESTHESIA ORAL [None]
  - TOOTH DISORDER [None]
